FAERS Safety Report 4292380-5 (Version None)
Quarter: 2004Q1

REPORT INFORMATION
  Report Type: 
  Country: None (occurrence: None)
  Receive Date: 20040126
  Receipt Date: 20031104
  Transmission Date: 20041129
  Serious: No
  Sender: FDA-Public Use
  Company Number: USA030845553

PATIENT
  Age: 50 Year
  Sex: Female
  Weight: 68 kg

DRUGS (8)
  1. FORTEO [Suspect]
     Indication: OSTEOPOROSIS
     Dosage: 20UG/DAY
     Dates: start: 20030822
  2. ALLEGRA-D [Concomitant]
     Indication: HYPERSENSITIVITY
  3. SINGULAIR [Concomitant]
     Indication: HYPERSENSITIVITY
  4. WELLBUTRIN [Concomitant]
  5. LOVENOX [Concomitant]
     Indication: THROMBOSIS
  6. SYNTHROID [Concomitant]
     Dates: start: 19780101
  7. KLONOPIN [Concomitant]
  8. ZOLOFT [Concomitant]

REACTIONS (3)
  - INJECTION SITE HAEMORRHAGE [None]
  - INJECTION SITE RASH [None]
  - TACHYCARDIA [None]
